FAERS Safety Report 4372690-3 (Version None)
Quarter: 2004Q2

REPORT INFORMATION
  Report Type: 
  Country: None (occurrence: None)
  Receive Date: 20040526
  Receipt Date: 20040512
  Transmission Date: 20050107
  Serious: Yes (Hospitalization)
  Sender: FDA-Public Use
  Company Number: SUSI-2004-00292

PATIENT
  Age: 18 Year
  Sex: Female

DRUGS (1)
  1. ADDERALL [Suspect]
     Indication: ATTENTION DEFICIT/HYPERACTIVITY DISORDER
     Dosage: 20MG A.M., 15MG NOON, UNK (SEE IMAGE)
     Route: 065
     Dates: start: 20001101, end: 20040324

REACTIONS (4)
  - BLOOD POTASSIUM DECREASED [None]
  - GRAND MAL CONVULSION [None]
  - INCONTINENCE [None]
  - NEUTROPHIL PERCENTAGE INCREASED [None]
